FAERS Safety Report 4627385-5 (Version None)
Quarter: 2005Q1

REPORT INFORMATION
  Report Type: 
  Country: None (occurrence: None)
  Receive Date: 20050330
  Receipt Date: 20050318
  Transmission Date: 20050727
  Serious: Yes (Disabling)
  Sender: FDA-Public Use
  Company Number: GBWYE523822MAR05

PATIENT
  Age: 62 Year
  Sex: Male

DRUGS (2)
  1. EFFEXOR XR [Suspect]
     Indication: DEPRESSION
     Dosage: 150MG FREQUENCY ORAL
     Route: 048
     Dates: start: 20050111, end: 20050214
  2. CO-CODAMOL            (CODEINE PHOSPHATE/PARACETAMOL) [Concomitant]

REACTIONS (5)
  - DIPLOPIA [None]
  - DRUG WITHDRAWAL SYNDROME [None]
  - EYELID PTOSIS [None]
  - FEELING ABNORMAL [None]
  - SENSORY LOSS [None]
